FAERS Safety Report 8977017 (Version 1)
Quarter: 2012Q4

REPORT INFORMATION
  Report Type: 
  Country: US (occurrence: US)
  Receive Date: 20121220
  Receipt Date: 20121220
  Transmission Date: 20130627
  Serious: No
  Sender: FDA-Public Use
  Company Number: US-GLAXOSMITHKLINE-A0995798A

PATIENT
  Age: 44 Year
  Sex: Male

DRUGS (8)
  1. SORIATANE [Suspect]
     Indication: PSORIASIS
     Dosage: 25MG Per day
     Route: 048
     Dates: start: 20120920
  2. LIPITOR [Concomitant]
  3. LISINOPRIL [Concomitant]
  4. ASPIRIN [Concomitant]
  5. VITAMIN D [Concomitant]
  6. NUCYNTA [Concomitant]
  7. ZETIA [Concomitant]
  8. OMEPRAZOLE [Concomitant]

REACTIONS (2)
  - Chapped lips [Unknown]
  - Skin exfoliation [Not Recovered/Not Resolved]
